FAERS Safety Report 6520295-8 (Version None)
Quarter: 2009Q4

REPORT INFORMATION
  Report Type: 
  Country: None (occurrence: None)
  Receive Date: 20091229
  Receipt Date: 20091214
  Transmission Date: 20100525
  Serious: Yes (Other)
  Sender: FDA-Public Use
  Company Number: ES-PFIZER INC-2009309439

PATIENT
  Age: 73 Year
  Sex: Male

DRUGS (3)
  1. LYRICA [Suspect]
     Indication: NEURALGIA
     Dosage: 150 MG, 1X/DAY
     Route: 048
     Dates: start: 20080901
  2. CYMBALTA [Interacting]
     Indication: DEPRESSION
     Dosage: 60 MG, 1X/DAY
     Route: 048
     Dates: start: 20080601
  3. PARIET [Interacting]
     Dosage: 20 MG, 1X/DAY
     Route: 048

REACTIONS (2)
  - CONSTIPATION [None]
  - DRUG INTERACTION [None]
